FAERS Safety Report 7371170-0 (Version None)
Quarter: 2011Q1

REPORT INFORMATION
  Report Type: 
  Country: None (occurrence: None)
  Receive Date: 20110314
  Receipt Date: 20110301
  Transmission Date: 20110831
  Serious: Yes (Life-Threatening, Hospitalization, Disabling, Other)
  Sender: FDA-Public Use
  Company Number: 025162

PATIENT
  Sex: Female

DRUGS (8)
  1. FAMOTIDINE [Concomitant]
  2. CERTOLIZUMAB PEGOL (CERTOLIZUMAB PEGOL) [Suspect]
     Indication: RHEUMATOID ARTHRITIS
     Dosage: (200 MG 1X/2 WEEKS SUBCUTANEOUS)
     Route: 058
     Dates: start: 20091119, end: 20101228
  3. METHOTREXATE [Concomitant]
  4. TELMISARTAN [Concomitant]
  5. FOLIC ACID [Concomitant]
  6. PREDNISOLONE [Concomitant]
  7. ZALTOPROFEN [Concomitant]
  8. ALENDRONATE SODIUM [Concomitant]

REACTIONS (17)
  - PUPILLARY REFLEX IMPAIRED [None]
  - BRAIN MIDLINE SHIFT [None]
  - DYSKINESIA [None]
  - GAMMA-GLUTAMYLTRANSFERASE INCREASED [None]
  - INTRACRANIAL PRESSURE INCREASED [None]
  - ALTERED STATE OF CONSCIOUSNESS [None]
  - THALAMUS HAEMORRHAGE [None]
  - HYPOAESTHESIA [None]
  - ASPARTATE AMINOTRANSFERASE INCREASED [None]
  - ALANINE AMINOTRANSFERASE INCREASED [None]
  - MYDRIASIS [None]
  - HEMIPLEGIA [None]
  - BLOOD PRESSURE INCREASED [None]
  - PUTAMEN HAEMORRHAGE [None]
  - BLOOD LACTATE DEHYDROGENASE INCREASED [None]
  - CEREBRAL HAEMORRHAGE [None]
  - BLOOD ALKALINE PHOSPHATASE INCREASED [None]
